FAERS Safety Report 4317399-7 (Version None)
Quarter: 2004Q1

REPORT INFORMATION
  Report Type: 
  Country: None (occurrence: None)
  Receive Date: 20040312
  Receipt Date: 20040226
  Transmission Date: 20041129
  Serious: Yes (Other)
  Sender: FDA-Public Use
  Company Number: MYAM000004

PATIENT
  Age: 20 Year
  Sex: Male

DRUGS (6)
  1. MYAMBUTOL [Suspect]
     Indication: CERVICAL GLAND TUBERCULOSIS
     Dosage: 1200 MG DAILY ORAL
     Route: 048
     Dates: start: 19990601, end: 19990801
  2. PYRAZINAMIDE [Concomitant]
  3. RIFAMPICIN [Concomitant]
  4. PROTHIONAMIDE (PROTIONAMIDE) [Concomitant]
  5. PYRIDOXINE HCL TAB [Concomitant]
  6. ISONIAZID [Concomitant]

REACTIONS (3)
  - MYELOPATHY [None]
  - OPTIC NEUROPATHY [None]
  - SCOTOMA [None]
